FAERS Safety Report 14704288 (Version 1)
Quarter: 2018Q2

REPORT INFORMATION
  Report Type: Spontaneous
  Country: US (occurrence: US)
  Receive Date: 20180402
  Receipt Date: 20180402
  Transmission Date: 20180711
  Serious: No
  Sender: FDA-Public Use
  Company Number: US-ALLERGAN-1757868US

PATIENT
  Sex: Female

DRUGS (1)
  1. ASACOL HD [Suspect]
     Active Substance: MESALAMINE
     Indication: COLITIS ULCERATIVE
     Dosage: 800 MG X 3, BID WITH MEALS

REACTIONS (3)
  - Inappropriate schedule of drug administration [Unknown]
  - Gastrointestinal disorder [Unknown]
  - Insomnia [Unknown]
